FAERS Safety Report 13242905 (Version 1)
Quarter: 2017Q1

REPORT INFORMATION
  Report Type: Spontaneous
  Country: JP (occurrence: JP)
  Receive Date: 20170217
  Receipt Date: 20170217
  Transmission Date: 20170428
  Serious: Yes (Hospitalization, Other)
  Sender: FDA-Public Use
  Company Number: JP-PFIZER INC-2016510431

PATIENT
  Age: 92 Year
  Sex: Female

DRUGS (1)
  1. CELECOX [Suspect]
     Active Substance: CELECOXIB
     Indication: CHONDROCALCINOSIS PYROPHOSPHATE
     Dosage: 200 MG, 2X/DAY
     Route: 048
     Dates: start: 20161003, end: 20161015

REACTIONS (5)
  - Erythema [Recovered/Resolved]
  - Product use issue [Unknown]
  - Withdrawal syndrome [Unknown]
  - Rash [Recovered/Resolved]
  - Pruritus [Unknown]

NARRATIVE: CASE EVENT DATE: 20161015
